FAERS Safety Report 5817759-9 (Version None)
Quarter: 2008Q3

REPORT INFORMATION
  Report Type: 
  Country: None (occurrence: None)
  Receive Date: 20080722
  Receipt Date: 20070817
  Transmission Date: 20090109
  Serious: No
  Sender: FDA-Public Use
  Company Number: US-TYCO HEALTHCARE/MALLINCKRODT-T200700967

PATIENT

DRUGS (6)
  1. TECHNESCAN MAG3 [Suspect]
     Indication: RENAL SCAN
     Dosage: 10 MCI, SINGLE
     Route: 042
     Dates: start: 20070815, end: 20070815
  2. LASIX [Suspect]
     Dosage: 20 MG, SINGLE
     Route: 042
     Dates: start: 20070815, end: 20070815
  3. VITAMIN E                          /00110501/ [Concomitant]
  4. MULTIVITAMIN                       /00831701/ [Concomitant]
  5. OMEGA 3 [Concomitant]
  6. CRANBERRY [Concomitant]
     Indication: SUPPLEMENTATION THERAPY
     Dosage: UNK, UNK

REACTIONS (2)
  - DYSPNOEA [None]
  - HEART RATE ABNORMAL [None]
